FAERS Safety Report 9630495 (Version 3)
Quarter: 2014Q1

REPORT INFORMATION
  Report Type: Spontaneous
  Country: FI (occurrence: FI)
  Receive Date: 20131018
  Receipt Date: 20140106
  Transmission Date: 20141002
  Serious: Yes (Other)
  Sender: FDA-Public Use
  Company Number: FI-AMGEN-FINSP2013072647

PATIENT
  Age: 75 Year
  Sex: Female

DRUGS (11)
  1. PROLIA [Suspect]
     Indication: OSTEOPOROSIS
     Dosage: 60 MG, UNK
     Route: 058
     Dates: start: 20130402
  2. TAMBOCOR [Concomitant]
     Indication: ARRHYTHMIA
     Dosage: 100 MG, HALF BID
     Route: 048
     Dates: start: 200510
  3. MAREVAN [Concomitant]
     Indication: ARRHYTHMIA
     Dosage: 5 MG, 1/2- 1 QD
     Route: 048
     Dates: start: 200004
  4. MAREVAN [Concomitant]
     Indication: PROPHYLAXIS
  5. ESPESIL [Concomitant]
     Indication: ARRHYTHMIA
     Dosage: 200 MG HALF BID
     Route: 048
     Dates: start: 200510
  6. MINISUN [Concomitant]
     Indication: BONE LOSS
     Dosage: 200 MG, UNK
     Route: 048
  7. CALCICHEW D3 [Concomitant]
     Indication: BONE LOSS
     Dosage: UNK UNK, TID
     Route: 048
  8. CALCICHEW D3 [Concomitant]
     Indication: RENAL FAILURE
  9. ETALPHA [Concomitant]
     Indication: RENAL FAILURE
     Dosage: 0.25 MUG, UNK
     Route: 048
  10. COHEMIN [Concomitant]
     Indication: VITAMIN B12 DEFICIENCY
     Dosage: UNK UNK, Q3MO
     Route: 030
  11. EMGESAN [Concomitant]
     Dosage: 250 MG, UNK
     Route: 048

REACTIONS (17)
  - Spinal fracture [Not Recovered/Not Resolved]
  - Local swelling [Recovering/Resolving]
  - Weight increased [Not Recovered/Not Resolved]
  - Hyperhidrosis [Recovered/Resolved]
  - Joint swelling [Recovering/Resolving]
  - Chills [Not Recovered/Not Resolved]
  - Tremor [Not Recovered/Not Resolved]
  - Hypotension [Not Recovered/Not Resolved]
  - Flushing [Not Recovered/Not Resolved]
  - Drug withdrawal syndrome [Not Recovered/Not Resolved]
  - Atrial fibrillation [Recovered/Resolved]
  - Insomnia [Not Recovered/Not Resolved]
  - Bone pain [Not Recovered/Not Resolved]
  - Pain in extremity [Not Recovered/Not Resolved]
  - Malaise [Not Recovered/Not Resolved]
  - Pain in jaw [Not Recovered/Not Resolved]
  - Back pain [Not Recovered/Not Resolved]
